FAERS Safety Report 11995637 (Version 1)
Quarter: 2016Q1

REPORT INFORMATION
  Report Type: Spontaneous
  Country: US (occurrence: US)
  Receive Date: 20160203
  Receipt Date: 20160203
  Transmission Date: 20160526
  Serious: Yes (Other)
  Sender: FDA-Public Use
  Company Number: US-DEP_13490_2016

PATIENT
  Age: 66 Year
  Sex: Female

DRUGS (3)
  1. GRALISE [Suspect]
     Active Substance: GABAPENTIN
     Indication: COMPLEX REGIONAL PAIN SYNDROME
     Dosage: TITRATED UP TO 1800 MG, ONCE DAILY, WITH THE EVENING MEAL [SAMPLE PACK]
     Route: 048
     Dates: start: 20160106, end: 20160123
  2. GRALISE [Suspect]
     Active Substance: GABAPENTIN
     Indication: PAIN
     Dosage: TITRATED UP TO 1800 MG, ONCE DAILY, WITH THE EVENING MEAL [SAMPLE PACK]
     Route: 048
     Dates: start: 20160106, end: 20160123
  3. TRAMADOL. [Concomitant]
     Active Substance: TRAMADOL
     Indication: PAIN
     Dosage: PRN
     Route: 048

REACTIONS (9)
  - Condition aggravated [Unknown]
  - Off label use [Recovered/Resolved]
  - Frustration tolerance decreased [Unknown]
  - Insomnia [Unknown]
  - Drug effect decreased [Recovered/Resolved]
  - Emotional distress [Unknown]
  - Sleep disorder [Unknown]
  - Suicidal ideation [Unknown]
  - Drug ineffective for unapproved indication [Unknown]

NARRATIVE: CASE EVENT DATE: 201601
